FAERS Safety Report 11227917 (Version 1)
Quarter: 2015Q2

REPORT INFORMATION
  Report Type: Spontaneous
  Country: US (occurrence: US)
  Receive Date: 20150630
  Receipt Date: 20150630
  Transmission Date: 20150821
  Serious: Yes (Hospitalization, Other)
  Sender: FDA-Public Use
  Company Number: US-BRISTOL-MYERS SQUIBB COMPANY-BMS-2015-043970

PATIENT
  Age: 56 Year
  Sex: Male

DRUGS (1)
  1. IPILIMUMAB [Suspect]
     Active Substance: IPILIMUMAB
     Indication: MALIGNANT MELANOMA
     Dosage: 3 MG/KG, UNK
     Route: 065
     Dates: start: 201211

REACTIONS (6)
  - Pemphigoid [Recovered/Resolved]
  - Dermatitis bullous [Recovered/Resolved]
  - Infection [Unknown]
  - Fatigue [Unknown]
  - Pruritus [Unknown]
  - Rash erythematous [Unknown]
